FAERS Safety Report 7943507-2 (Version None)
Quarter: 2011Q4

REPORT INFORMATION
  Report Type: 
  Country: None (occurrence: None)
  Receive Date: 20111128
  Receipt Date: 20111123
  Transmission Date: 20120403
  Serious: Yes (Other)
  Sender: FDA-Public Use
  Company Number: US-AMGEN-USASP2011034265

PATIENT
  Age: 77 Year
  Sex: Male
  Weight: 99.8 kg

DRUGS (1)
  1. NPLATE [Suspect]
     Indication: THROMBOCYTOPENIA
     Dates: start: 20110701, end: 20111110

REACTIONS (2)
  - HODGKIN'S DISEASE RECURRENT [None]
  - THERAPEUTIC RESPONSE DECREASED [None]
